FAERS Safety Report 8490924-0 (Version None)
Quarter: 2012Q2

REPORT INFORMATION
  Report Type: 
  Country: None (occurrence: None)
  Receive Date: 20120629
  Receipt Date: 20120629
  Transmission Date: 20120825
  Serious: Yes (Other)
  Sender: FDA-Public Use
  Company Number: None

PATIENT
  Sex: Male

DRUGS (3)
  1. PRAVASTATIN [Suspect]
     Indication: BLOOD CHOLESTEROL INCREASED
     Dosage: 80 MG ONCE A DAY PO
     Route: 048
     Dates: start: 20120624, end: 20120627
  2. BUPROPION HCL [Concomitant]
  3. BUSPIRONE HCL [Suspect]
     Indication: ANXIETY
     Dosage: 5 MG THREE A DAY PO COUPLE OF YEARS
     Route: 048

REACTIONS (2)
  - DYSKINESIA [None]
  - SENSORY LOSS [None]
